FAERS Safety Report 24651032 (Version 3)
Quarter: 2025Q2

REPORT INFORMATION
  Report Type: Spontaneous
  Country: ES (occurrence: ES)
  Receive Date: 20241122
  Receipt Date: 20250630
  Transmission Date: 20250717
  Serious: Yes (Hospitalization)
  Sender: AUROBINDO
  Company Number: ES-AEMPS-1590722

PATIENT
  Age: 16 Year
  Sex: Female
  Weight: 45.2 kg

DRUGS (4)
  1. ACETAMINOPHEN [Interacting]
     Active Substance: ACETAMINOPHEN
     Indication: Product used for unknown indication
     Route: 048
     Dates: start: 20040914, end: 20240914
  2. TRAZODONE [Interacting]
     Active Substance: TRAZODONE HYDROCHLORIDE
     Indication: Product used for unknown indication
     Route: 048
     Dates: start: 20240914, end: 20240914
  3. EBASTINE [Interacting]
     Active Substance: EBASTINE
     Indication: Product used for unknown indication
     Route: 048
     Dates: start: 20240914, end: 20240914
  4. DEXKETOPROFEN [Interacting]
     Active Substance: DEXKETOPROFEN
     Indication: Product used for unknown indication
     Route: 048
     Dates: start: 20240914, end: 20240914

REACTIONS (3)
  - Somnolence [Recovered/Resolved]
  - Hyperamylasaemia [Recovered/Resolved]
  - Intentional overdose [Recovered/Resolved]

NARRATIVE: CASE EVENT DATE: 20240914
